FAERS Safety Report 9463215 (Version 1)
Quarter: 2013Q3

REPORT INFORMATION
  Report Type: Spontaneous
  Country: IT (occurrence: IT)
  Receive Date: 20130818
  Receipt Date: 20130818
  Transmission Date: 20140515
  Serious: Yes (Hospitalization)
  Sender: FDA-Public Use
  Company Number: PHHY2013IT087591

PATIENT
  Sex: Female

DRUGS (2)
  1. OXALIPLATIN [Suspect]
     Indication: COLON CANCER METASTATIC
     Dosage: 189.8 MG, UNK
     Route: 042
     Dates: start: 20101129, end: 20121017
  2. AVASTIN [Suspect]
     Indication: COLON CANCER METASTATIC
     Dosage: 189 MG, UNK
     Dates: start: 20120926, end: 20121007

REACTIONS (1)
  - Loss of consciousness [Recovered/Resolved]
